FAERS Safety Report 7898821-6 (Version None)
Quarter: 2011Q4

REPORT INFORMATION
  Report Type: 
  Country: None (occurrence: None)
  Receive Date: 20111107
  Receipt Date: 20101129
  Transmission Date: 20120403
  Serious: No
  Sender: FDA-Public Use
  Company Number: US-ABBOTT-10P-163-0635782-00

PATIENT
  Sex: Female
  Weight: 61.29 kg

DRUGS (4)
  1. COUMADIN [Suspect]
     Indication: FACTOR V LEIDEN MUTATION
     Dates: end: 20070101
  2. VIT [Concomitant]
     Indication: PRODUCT USED FOR UNKNOWN INDICATION
  3. TRICOR [Suspect]
     Indication: BLOOD CHOLESTEROL
     Dates: end: 20070101
  4. PROTONIX [Concomitant]
     Indication: PRODUCT USED FOR UNKNOWN INDICATION

REACTIONS (1)
  - INTERNATIONAL NORMALISED RATIO FLUCTUATION [None]
